FAERS Safety Report 6146543-4 (Version None)
Quarter: 2009Q2

REPORT INFORMATION
  Report Type: 
  Country: None (occurrence: None)
  Receive Date: 20090403
  Receipt Date: 20090323
  Transmission Date: 20091009
  Serious: Yes (Death, Hospitalization)
  Sender: FDA-Public Use
  Company Number: FABR-1000700

PATIENT
  Sex: Female
  Weight: 41.4 kg

DRUGS (12)
  1. FABRAZYME [Suspect]
     Indication: FABRY'S DISEASE
     Dosage: INTRAVENOUS
     Route: 042
     Dates: start: 20070716, end: 20090220
  2. ASPIRIN [Concomitant]
  3. PLAVIX [Concomitant]
  4. PRILOSEC [Concomitant]
  5. LISINOPRIL [Concomitant]
  6. ZOCOR [Concomitant]
  7. DILANTIN [Concomitant]
  8. CARBAMAZEPINE [Concomitant]
  9. BENADRYL [Concomitant]
  10. TRAMADOL HCL [Concomitant]
  11. VICODIN [Concomitant]
  12. TYLENOL W/ CODEINE NO. 3 [Concomitant]

REACTIONS (13)
  - APHASIA [None]
  - BLOOD CREATININE INCREASED [None]
  - BLOOD PRESSURE DECREASED [None]
  - BLOOD UREA INCREASED [None]
  - HEMIPARESIS [None]
  - LACTIC ACIDOSIS [None]
  - MULTI-ORGAN FAILURE [None]
  - REFUSAL OF TREATMENT BY RELATIVE [None]
  - RESPIRATORY FAILURE [None]
  - RUPTURED CEREBRAL ANEURYSM [None]
  - SUBARACHNOID HAEMORRHAGE [None]
  - UNRESPONSIVE TO STIMULI [None]
  - URINE OUTPUT DECREASED [None]
